FAERS Safety Report 6227371-8 (Version None)
Quarter: 2009Q2

REPORT INFORMATION
  Report Type: 
  Country: None (occurrence: None)
  Receive Date: 20090610
  Receipt Date: 20090528
  Transmission Date: 20091009
  Serious: Yes (Hospitalization)
  Sender: FDA-Public Use
  Company Number: 230358K09GRC

PATIENT
  Age: 45 Year
  Sex: Female

DRUGS (5)
  1. REBIF [Suspect]
     Indication: MULTIPLE SCLEROSIS
     Dosage: 3 IN 1 WEEKS, SUBCUTANEOUS
     Route: 058
     Dates: start: 20080501
  2. LEUCOVORIN CALCIUM [Concomitant]
  3. CORTIZONE (HYDROCORTISONE /00028601/) [Concomitant]
  4. RANITIDINE HYDROCLOR (RANITIDINE HYDROCHLORIDE) [Concomitant]
  5. LEVOCARNITINE (LEVOCARNITINE) [Concomitant]

REACTIONS (3)
  - BLADDER DISTENSION [None]
  - URETERIC DILATATION [None]
  - URINARY RETENTION [None]
